FAERS Safety Report 12543749 (Version 1)
Quarter: 2016Q3

REPORT INFORMATION
  Report Type: Spontaneous
  Country: US (occurrence: None)
  Receive Date: 20160708
  Receipt Date: 20160708
  Transmission Date: 20161109
  Serious: Yes (Other)
  Sender: FDA-Public Use
  Company Number: None

PATIENT
  Age: 16 Year
  Sex: Female
  Weight: 52.16 kg

DRUGS (2)
  1. IMITREX [Suspect]
     Active Substance: SUMATRIPTAN SUCCINATE
     Indication: PRODUCT USED FOR UNKNOWN INDICATION
     Dosage: GIVEN INTO/UNDER THE SKIN
     Dates: start: 20160703
  2. TYLENOL [Concomitant]
     Active Substance: ACETAMINOPHEN

REACTIONS (7)
  - Pain in jaw [None]
  - Agitation [None]
  - Flushing [None]
  - Burning sensation [None]
  - Headache [None]
  - Neck pain [None]
  - Anxiety [None]

NARRATIVE: CASE EVENT DATE: 20160703
